FAERS Safety Report 6397568-5 (Version None)
Quarter: 2009Q4

REPORT INFORMATION
  Report Type: 
  Country: None (occurrence: None)
  Receive Date: 20091012
  Receipt Date: 20090911
  Transmission Date: 20100525
  Serious: No
  Sender: FDA-Public Use
  Company Number: US-BAYER-200933008NA

PATIENT
  Age: 81 Year
  Sex: Female

DRUGS (1)
  1. MAGNEVIST [Suspect]
     Indication: ARTERIOGRAM CAROTID
     Dosage: TOTAL DAILY DOSE: 20 ML  UNIT DOSE: 50 ML
     Dates: start: 20090911, end: 20090911

REACTIONS (1)
  - VOMITING [None]
